FAERS Safety Report 19415143 (Version 1)
Quarter: 2021Q2

REPORT INFORMATION
  Report Type: Spontaneous
  Country: US (occurrence: US)
  Receive Date: 20210614
  Receipt Date: 20210614
  Transmission Date: 20210717
  Serious: No
  Sender: FDA-Public Use
  Company Number: US-PFIZER INC-2021005330

PATIENT
  Age: 64 Year
  Sex: Female
  Weight: 71.66 kg

DRUGS (2)
  1. PREMPRO [Suspect]
     Active Substance: ESTROGENS, CONJUGATED\MEDROXYPROGESTERONE ACETATE
     Indication: MENOPAUSE
     Dosage: 1 DF, 1X/DAY (0.625?2.5MG, 1 TABLET BY MOUTH ONCE DAILY)
     Route: 048
     Dates: start: 2018, end: 20201223
  2. PREMPRO [Suspect]
     Active Substance: ESTROGENS, CONJUGATED\MEDROXYPROGESTERONE ACETATE
     Indication: HOT FLUSH
     Dosage: 0.625MG?2.5MG
     Dates: start: 2019

REACTIONS (3)
  - Breast enlargement [Unknown]
  - Breast tenderness [Unknown]
  - Breast swelling [Unknown]
